FAERS Safety Report 16111249 (Version 1)
Quarter: 2019Q1

REPORT INFORMATION
  Report Type: Spontaneous
  Country: US (occurrence: US)
  Receive Date: 20190220
  Receipt Date: 20190220
  Transmission Date: 20190418
  Serious: No
  Sender: FDA-Public Use
  Company Number: None

PATIENT
  Age: 36 Year
  Sex: Female

DRUGS (1)
  1. MYCOPHENOLATE MOF TAB 500MG [Suspect]
     Active Substance: MYCOPHENOLATE MOFETIL
     Dosage: ?          OTHER DOSE:1 TABELT;?
     Route: 048
     Dates: start: 201811

REACTIONS (4)
  - Insurance issue [None]
  - Product distribution issue [None]
  - Off label use [None]
  - Therapy cessation [None]

NARRATIVE: CASE EVENT DATE: 20190220
